FAERS Safety Report 6720186-3 (Version None)
Quarter: 2010Q2

REPORT INFORMATION
  Report Type: 
  Country: None (occurrence: None)
  Receive Date: 20100511
  Receipt Date: 20100504
  Transmission Date: 20101027
  Serious: Yes (Hospitalization)
  Sender: FDA-Public Use
  Company Number: US-SANOFI-AVENTIS-2010SA025663

PATIENT
  Age: 70 Year

DRUGS (4)
  1. MULTAQ [Suspect]
     Indication: ATRIAL FIBRILLATION
     Route: 048
  2. MULTAQ [Suspect]
     Indication: CARDIAC ABLATION
     Route: 048
  3. TOPROL-XL [Concomitant]
  4. WARFARIN [Concomitant]

REACTIONS (6)
  - ASTHENIA [None]
  - CARDIAC FAILURE [None]
  - FATIGUE [None]
  - HYPONATRAEMIA [None]
  - NAUSEA [None]
  - WEIGHT INCREASED [None]
